FAERS Safety Report 7193866-6 (Version None)
Quarter: 2010Q4

REPORT INFORMATION
  Report Type: 
  Country: None (occurrence: None)
  Receive Date: 20101223
  Receipt Date: 20100913
  Transmission Date: 20110411
  Serious: No
  Sender: FDA-Public Use
  Company Number: US-AMGEN-KDL438019

PATIENT

DRUGS (1)
  1. ENBREL [Suspect]
     Indication: RHEUMATOID ARTHRITIS
     Dosage: 25 MG, 2 TIMES/WK
     Route: 058

REACTIONS (5)
  - MUSCULOSKELETAL PAIN [None]
  - NECK PAIN [None]
  - PHOTOSENSITIVITY REACTION [None]
  - RASH MACULAR [None]
  - RASH PRURITIC [None]
